FAERS Safety Report 8423931-4 (Version None)
Quarter: 2012Q2

REPORT INFORMATION
  Report Type: 
  Country: None (occurrence: None)
  Receive Date: 20120608
  Receipt Date: 20120322
  Transmission Date: 20120825
  Serious: No
  Sender: FDA-Public Use
  Company Number: US-ASTRAZENECA-2012SE19922

PATIENT
  Sex: Female

DRUGS (3)
  1. METOPROLOL SUCCINATE [Suspect]
     Route: 048
  2. METOPROLOL TARTRATE [Suspect]
     Route: 065
  3. ATACAND [Suspect]
     Indication: CARDIAC DISORDER
     Dosage: SPLITTING 4 MG
     Route: 048

REACTIONS (2)
  - FATIGUE [None]
  - METAMORPHOPSIA [None]
